FAERS Safety Report 6505766-2 (Version None)
Quarter: 2009Q4

REPORT INFORMATION
  Report Type: 
  Country: None (occurrence: None)
  Receive Date: 20091218
  Receipt Date: 20091208
  Transmission Date: 20100525
  Serious: Yes (Other)
  Sender: FDA-Public Use
  Company Number: JP-PFIZER INC-2009266480

PATIENT
  Age: 87 Year
  Sex: Female

DRUGS (8)
  1. NORVASC [Suspect]
     Indication: HYPERTENSION
     Dosage: 5 MG/DAY
     Route: 048
     Dates: start: 20071207, end: 20090626
  2. CARDENALIN [Suspect]
     Indication: HYPERTENSION
     Dosage: 2 MG, 2X/DAY
     Route: 048
     Dates: start: 19990111, end: 20071206
  3. CARDENALIN [Suspect]
     Dosage: 2 MG, 1X/DAY
     Dates: start: 20091207
  4. OLMETEC [Suspect]
     Indication: HYPERTENSION
     Dosage: 20 MG, 1X/DAY
     Route: 048
     Dates: start: 20071207, end: 20090601
  5. OLMETEC [Suspect]
     Dosage: 20 MG, 2X/DAY
     Dates: start: 20090601, end: 20090728
  6. RENIVACE [Concomitant]
     Indication: HYPERTENSION
     Dosage: UNK
     Route: 048
     Dates: start: 19990111, end: 20071206
  7. DEPAS [Concomitant]
     Indication: INSOMNIA
     Dosage: UNK
     Route: 048
     Dates: start: 19990111
  8. CALSLOT [Concomitant]
     Indication: HYPERTENSION
     Dosage: UNK
     Route: 048
     Dates: start: 19991119, end: 20071206

REACTIONS (1)
  - PLATELET COUNT DECREASED [None]
